FAERS Safety Report 4539871-7 (Version None)
Quarter: 2004Q4

REPORT INFORMATION
  Report Type: 
  Country: None (occurrence: None)
  Receive Date: 20041223
  Receipt Date: 20041210
  Transmission Date: 20050328
  Serious: Yes (Other)
  Sender: FDA-Public Use
  Company Number: 2004108319

PATIENT
  Age: 60 Year
  Sex: Male

DRUGS (2)
  1. NORVASC [Suspect]
     Indication: BLOOD PRESSURE INCREASED
     Dosage: 5 MG (1 D), ORAL
     Route: 048
     Dates: start: 20041120, end: 20041129
  2. ACETYLCYSTEINE [Concomitant]

REACTIONS (3)
  - ATRIOVENTRICULAR BLOCK [None]
  - EMPHYSEMA [None]
  - PNEUMOTHORAX [None]
